FAERS Safety Report 25672839 (Version 1)
Quarter: 2025Q3

REPORT INFORMATION
  Report Type: Spontaneous
  Country: US (occurrence: US)
  Receive Date: 20250812
  Receipt Date: 20250812
  Transmission Date: 20251020
  Serious: No
  Sender: ANI
  Company Number: US-ANIPHARMA-2025-US-004232

PATIENT
  Age: 55 Year
  Sex: Female
  Weight: 96.16 kg

DRUGS (12)
  1. CORTICOTROPIN [Suspect]
     Active Substance: CORTICOTROPIN
     Indication: Atopic keratoconjunctivitis
     Route: 058
     Dates: start: 202411
  2. ZYRTEC [Concomitant]
     Active Substance: CETIRIZINE HYDROCHLORIDE
  3. PROLENSA [Concomitant]
     Active Substance: BROMFENAC SODIUM
  4. PATADAY [Concomitant]
     Active Substance: OLOPATADINE HYDROCHLORIDE
  5. METFORMIN HYDROCHLORIDE [Concomitant]
     Active Substance: METFORMIN HYDROCHLORIDE
  6. ATORVASTATIN CALCIUM [Concomitant]
     Active Substance: ATORVASTATIN CALCIUM
  7. ACYCLOVIR [Concomitant]
     Active Substance: ACYCLOVIR
  8. DORZOLAMIDE HYDROCHLORIDE [Concomitant]
     Active Substance: DORZOLAMIDE HYDROCHLORIDE
  9. COSOPT [Concomitant]
     Active Substance: DORZOLAMIDE HYDROCHLORIDE\TIMOLOL MALEATE
  10. CALCIUM CARBONATE/VITAMIN [Concomitant]
  11. LOTEMAX SM [Concomitant]
     Active Substance: LOTEPREDNOL ETABONATE
  12. EPIPEN [Concomitant]
     Active Substance: EPINEPHRINE

REACTIONS (4)
  - Heart rate increased [Recovered/Resolved]
  - Blood pressure increased [Recovering/Resolving]
  - COVID-19 [Not Recovered/Not Resolved]
  - Therapeutic product effect decreased [Not Recovered/Not Resolved]

NARRATIVE: CASE EVENT DATE: 20250101
